FAERS Safety Report 7675918-7 (Version None)
Quarter: 2011Q3

REPORT INFORMATION
  Report Type: 
  Country: None (occurrence: None)
  Receive Date: 20110811
  Receipt Date: 20110802
  Transmission Date: 20111222
  Serious: Yes (Other)
  Sender: FDA-Public Use
  Company Number: US-BIOGENIDEC-2011BI029588

PATIENT
  Sex: Female
  Weight: 73 kg

DRUGS (14)
  1. VALIUM [Concomitant]
     Route: 048
  2. CALTRATE 600 [Concomitant]
  3. PROTONIX [Concomitant]
  4. BACLOFEN [Concomitant]
     Route: 048
  5. PROVIGIL [Concomitant]
     Route: 048
  6. TOPAMAX [Concomitant]
     Route: 048
  7. ACTONEL [Concomitant]
  8. CRESTOR [Concomitant]
     Route: 048
  9. OXYBUTYNIN CHLORIDE [Concomitant]
     Route: 048
  10. TOPAMAX [Concomitant]
     Route: 048
  11. AVONEX [Suspect]
     Indication: MULTIPLE SCLEROSIS
     Route: 030
  12. CITALOPRAM HYDROBROMIDE [Concomitant]
     Route: 048
  13. TOPAMAX [Concomitant]
     Route: 048
  14. BUSPIRONE HCL [Concomitant]
     Route: 048

REACTIONS (4)
  - SURGERY [None]
  - COMPLEX PARTIAL SEIZURES [None]
  - DRUG INEFFECTIVE [None]
  - DEEP VEIN THROMBOSIS [None]
